FAERS Safety Report 8438643-0 (Version None)
Quarter: 2012Q2

REPORT INFORMATION
  Report Type: 
  Country: None (occurrence: None)
  Receive Date: 20120615
  Receipt Date: 20120611
  Transmission Date: 20120825
  Serious: Yes (Other)
  Sender: FDA-Public Use
  Company Number: US-PFIZER INC-2012140273

PATIENT
  Sex: Male
  Weight: 63.492 kg

DRUGS (1)
  1. PHENYTOIN SODIUM [Suspect]
     Indication: CONVULSION
     Dosage: 100MG IN MORNING AND 300MG IN AFTERNOON, 2X/DAY
     Dates: start: 20120101, end: 20120610

REACTIONS (3)
  - MALAISE [None]
  - CONVULSION [None]
  - ASTHENIA [None]
